FAERS Safety Report 16297099 (Version 1)
Quarter: 2019Q2

REPORT INFORMATION
  Report Type: Report from Study
  Country: FR (occurrence: FR)
  Receive Date: 20190510
  Receipt Date: 20190510
  Transmission Date: 20190711
  Serious: Yes (Other)
  Sender: FDA-Public Use
  Company Number: FR-ROCHE-2311598

PATIENT

DRUGS (9)
  1. DASABUVIR [Suspect]
     Active Substance: DASABUVIR
     Indication: HEPATITIS C
     Route: 065
  2. RITONAVIR. [Suspect]
     Active Substance: RITONAVIR
     Indication: HEPATITIS C
     Route: 065
  3. PARITAPREVIR [Suspect]
     Active Substance: PARITAPREVIR
     Indication: HEPATITIS C
     Route: 065
  4. SOFOSBUVIR [Suspect]
     Active Substance: SOFOSBUVIR
     Indication: HEPATITIS C
     Route: 065
  5. DACLATASVIR. [Suspect]
     Active Substance: DACLATASVIR
     Indication: HEPATITIS C
     Route: 065
  6. OMBITASVIR [Suspect]
     Active Substance: OMBITASVIR
     Indication: HEPATITIS C
     Route: 065
  7. RIBAVIRIN. [Suspect]
     Active Substance: RIBAVIRIN
     Indication: HEPATITIS C
     Route: 065
  8. SIMEPREVIR [Suspect]
     Active Substance: SIMEPREVIR
     Indication: HEPATITIS C
     Route: 065
  9. LEDIPASVIR [Suspect]
     Active Substance: LEDIPASVIR
     Indication: HEPATITIS C
     Route: 065

REACTIONS (14)
  - Skin disorder [Unknown]
  - Infection [Unknown]
  - Mental disorder [Unknown]
  - Thyroid disorder [Unknown]
  - Anaemia [Unknown]
  - Fatigue [Unknown]
  - Proctitis haemorrhagic [Unknown]
  - Hepatic cirrhosis [Unknown]
  - Hepatic cancer [Unknown]
  - Nervous system disorder [Unknown]
  - Blood creatine phosphokinase increased [Unknown]
  - Hepatocellular carcinoma [Unknown]
  - Renal failure [Unknown]
  - Hypoglycaemia [Unknown]
